FAERS Safety Report 5496824-2 (Version None)
Quarter: 2007Q4

REPORT INFORMATION
  Report Type: 
  Country: None (occurrence: None)
  Receive Date: 20071025
  Receipt Date: 20070822
  Transmission Date: 20080405
  Serious: No
  Sender: FDA-Public Use
  Company Number: A0674705A

PATIENT
  Sex: Female

DRUGS (5)
  1. ADVAIR DISKUS 100/50 [Suspect]
     Indication: ASTHMA
     Dosage: 2PUFF TWICE PER DAY
     Route: 055
     Dates: start: 20040101
  2. COMBIVENT [Concomitant]
  3. DIABETES MEDICATION [Concomitant]
  4. OTHER MEDICATIONS [Concomitant]
     Indication: BACK DISORDER
  5. BLOOD PRESSURE MEDICATION [Concomitant]

REACTIONS (1)
  - CANDIDIASIS [None]
